FAERS Safety Report 4768438-0 (Version None)
Quarter: 2005Q3

REPORT INFORMATION
  Report Type: 
  Country: None (occurrence: None)
  Receive Date: 20050914
  Receipt Date: 20050112
  Transmission Date: 20060218
  Serious: Yes (Other)
  Sender: FDA-Public Use
  Company Number: AU-ROCHE-392389

PATIENT
  Age: 31 Year
  Sex: Female
  Weight: 63 kg

DRUGS (4)
  1. ROACCUTANE [Suspect]
     Indication: ACNE
     Route: 048
     Dates: start: 20041005, end: 20041116
  2. ROACCUTANE [Suspect]
     Route: 048
     Dates: start: 20040715, end: 20041005
  3. DIANE [Concomitant]
  4. DOXYCYCLINE [Concomitant]

REACTIONS (10)
  - ACNE [None]
  - ANGER [None]
  - ANXIETY [None]
  - CONDITION AGGRAVATED [None]
  - FATIGUE [None]
  - HYPERSOMNIA [None]
  - LETHARGY [None]
  - MOOD ALTERED [None]
  - SUICIDAL IDEATION [None]
  - WEIGHT DECREASED [None]
